FAERS Safety Report 25070747 (Version 2)
Quarter: 2025Q1

REPORT INFORMATION
  Report Type: Spontaneous
  Country: US (occurrence: US)
  Receive Date: 20250312
  Receipt Date: 20250312
  Transmission Date: 20250409
  Serious: Yes (Life-Threatening, Other)
  Sender: AMGEN
  Company Number: US-AMGEN-USASP2025044724

PATIENT

DRUGS (1)
  1. CORLANOR [Suspect]
     Active Substance: IVABRADINE HYDROCHLORIDE
     Indication: Cardiac failure
     Route: 065

REACTIONS (40)
  - Chest pain [Unknown]
  - Hypotension [Unknown]
  - Hypertension [Unknown]
  - Bradycardia [Unknown]
  - Electrocardiogram QT prolonged [Unknown]
  - Electrocardiogram abnormal [Unknown]
  - Tachycardia [Unknown]
  - Conduction disorder [Unknown]
  - Depressed level of consciousness [Unknown]
  - Rhabdomyolysis [Unknown]
  - Syncope [Unknown]
  - Intentional product misuse [Unknown]
  - Electrolyte imbalance [Unknown]
  - Blood creatinine increased [Unknown]
  - Dizziness [Unknown]
  - Vertigo [Unknown]
  - Visual impairment [Unknown]
  - Somnolence [Unknown]
  - Lethargy [Unknown]
  - Agitation [Unknown]
  - Dysarthria [Unknown]
  - Tremor [Unknown]
  - Headache [Unknown]
  - Tinnitus [Unknown]
  - Muscular weakness [Unknown]
  - Neurological symptom [Unknown]
  - Vomiting [Unknown]
  - Nausea [Unknown]
  - Diarrhoea [Unknown]
  - Dyspnoea [Unknown]
  - Cyanosis [Unknown]
  - Erythema [Unknown]
  - Flushing [Unknown]
  - Hyperhidrosis [Unknown]
  - Drug ineffective [Unknown]
  - Adverse drug reaction [Unknown]
  - Therapeutic product effect incomplete [Unknown]
  - Accidental exposure to product [Unknown]
  - Accidental exposure to product by child [Unknown]
  - Medication error [Unknown]
